FAERS Safety Report 8419867-5 (Version None)
Quarter: 2012Q2

REPORT INFORMATION
  Report Type: 
  Country: None (occurrence: None)
  Receive Date: 20120607
  Receipt Date: 20120531
  Transmission Date: 20120825
  Serious: No
  Sender: FDA-Public Use
  Company Number: US-ENDO PHARMACEUTICALS INC.-OPER20120529

PATIENT
  Sex: Female

DRUGS (2)
  1. OPANA [Concomitant]
     Indication: PAIN
     Route: 048
     Dates: end: 20120101
  2. OPANA ER [Suspect]
     Indication: PAIN
     Route: 048
     Dates: start: 20120101

REACTIONS (8)
  - NAUSEA [None]
  - DRUG INEFFECTIVE [None]
  - HEADACHE [None]
  - DYSPHAGIA [None]
  - CONSTIPATION [None]
  - VOMITING [None]
  - INFECTION [None]
  - ABDOMINAL DISCOMFORT [None]
